FAERS Safety Report 9283492 (Version 1)
Quarter: 2013Q2

REPORT INFORMATION
  Report Type: Spontaneous
  Country: US (occurrence: US)
  Receive Date: 20130510
  Receipt Date: 20130510
  Transmission Date: 20140414
  Serious: No
  Sender: FDA-Public Use
  Company Number: US-GLAXOSMITHKLINE-A1012551A

PATIENT
  Sex: Male
  Weight: 89.5 kg

DRUGS (2)
  1. TYKERB [Suspect]
     Indication: OESOPHAGEAL CARCINOMA
     Dosage: 1250MG PER DAY
     Route: 048
     Dates: start: 20121209, end: 20130208
  2. POLYPHARMACY [Concomitant]

REACTIONS (1)
  - Drug ineffective [Unknown]
